FAERS Safety Report 16219161 (Version 3)
Quarter: 2019Q4

REPORT INFORMATION
  Report Type: Spontaneous
  Country: US (occurrence: US)
  Receive Date: 20190419
  Receipt Date: 20191022
  Transmission Date: 20200122
  Serious: Yes (Other)
  Sender: FDA-Public Use
  Company Number: US-ASTRAZENECA-2019SE09867

PATIENT
  Age: 67 Year
  Sex: Male
  Weight: 118.8 kg

DRUGS (32)
  1. NEXIUM [Suspect]
     Active Substance: ESOMEPRAZOLE MAGNESIUM
     Indication: GASTROOESOPHAGEAL REFLUX DISEASE
     Route: 048
  2. NEXIUM [Suspect]
     Active Substance: ESOMEPRAZOLE MAGNESIUM
     Indication: GASTROOESOPHAGEAL REFLUX DISEASE
     Dosage: TWO TMES A DAY UNKNOWN
     Route: 048
     Dates: start: 1998, end: 2014
  3. NEXIUM [Suspect]
     Active Substance: ESOMEPRAZOLE MAGNESIUM
     Indication: GASTROOESOPHAGEAL REFLUX DISEASE
     Dosage: TWO TMES A DAY UNKNOWN
     Route: 048
     Dates: start: 2011, end: 2015
  4. PRILOSEC OTC [Suspect]
     Active Substance: OMEPRAZOLE MAGNESIUM
     Route: 048
  5. NEXIUM 24HR [Suspect]
     Active Substance: ESOMEPRAZOLE MAGNESIUM
     Route: 048
  6. ALLOPURINOL. [Concomitant]
     Active Substance: ALLOPURINOL
  7. CLARITIN-D NOS [Concomitant]
     Active Substance: LORATADINE\PSEUDOEPHEDRINE SULFATE
  8. ALLOPURINOL. [Concomitant]
     Active Substance: ALLOPURINOL
  9. NEXIUM [Suspect]
     Active Substance: ESOMEPRAZOLE MAGNESIUM
     Indication: GASTROOESOPHAGEAL REFLUX DISEASE
     Dosage: TWO TMES A DAY UNKNOWN
     Route: 048
     Dates: start: 1995, end: 1998
  10. AMLODIPINE [Concomitant]
     Active Substance: AMLODIPINE BESYLATE
  11. VIOXX [Concomitant]
     Active Substance: ROFECOXIB
     Indication: ARTHRALGIA
  12. PENICILLIN [Concomitant]
     Active Substance: PENICILLIN
     Indication: INFECTION
  13. ALLEGRA [Concomitant]
     Active Substance: FEXOFENADINE HYDROCHLORIDE
  14. CELEBREX [Concomitant]
     Active Substance: CELECOXIB
     Indication: ARTHRALGIA
  15. PROMETHAZINE [Concomitant]
     Active Substance: PROMETHAZINE HYDROCHLORIDE
  16. NEXIUM [Suspect]
     Active Substance: ESOMEPRAZOLE MAGNESIUM
     Indication: GASTROOESOPHAGEAL REFLUX DISEASE
     Dosage: TWO TMES A DAY UNKNOWN
     Route: 048
     Dates: start: 1995, end: 2014
  17. LIPITOR [Concomitant]
     Active Substance: ATORVASTATIN CALCIUM
  18. AMOXICILLIN. [Concomitant]
     Active Substance: AMOXICILLIN
  19. PREVIDENT [Concomitant]
     Active Substance: SODIUM FLUORIDE
  20. IPRATROPIUM [Concomitant]
     Active Substance: IPRATROPIUM
  21. NEXIUM [Suspect]
     Active Substance: ESOMEPRAZOLE MAGNESIUM
     Indication: GASTROOESOPHAGEAL REFLUX DISEASE
     Dosage: 40.0MG UNKNOWN
     Route: 048
     Dates: start: 20130124
  22. CALCITRIOL. [Concomitant]
     Active Substance: CALCITRIOL
  23. PEPCID AC [Concomitant]
     Active Substance: FAMOTIDINE
  24. ATENOLOL. [Concomitant]
     Active Substance: ATENOLOL
  25. COZAAR [Concomitant]
     Active Substance: LOSARTAN POTASSIUM
  26. PEPCID COMPLETE OTC [Concomitant]
     Route: 065
     Dates: start: 2015
  27. KRISTALOSE [Concomitant]
     Active Substance: LACTULOSE
  28. CLINDAMYCIN. [Concomitant]
     Active Substance: CLINDAMYCIN
  29. TUMS [Concomitant]
     Active Substance: CALCIUM CARBONATE
  30. VIAGRA [Concomitant]
     Active Substance: SILDENAFIL CITRATE
  31. SUCRALFATE. [Concomitant]
     Active Substance: SUCRALFATE
  32. ATORVASTATIN [Concomitant]
     Active Substance: ATORVASTATIN

REACTIONS (5)
  - Renal failure [Unknown]
  - Renal injury [Unknown]
  - Rebound acid hypersecretion [Unknown]
  - Renal impairment [Unknown]
  - Chronic kidney disease [Not Recovered/Not Resolved]

NARRATIVE: CASE EVENT DATE: 2015
